FAERS Safety Report 6010172-3 (Version None)
Quarter: 2008Q4

REPORT INFORMATION
  Report Type: 
  Country: None (occurrence: None)
  Receive Date: 20081218
  Receipt Date: 20081215
  Transmission Date: 20090506
  Serious: Yes (Other)
  Sender: FDA-Public Use
  Company Number: JP-BRISTOL-MYERS SQUIBB COMPANY-14444731

PATIENT
  Age: 59 Year
  Sex: Female

DRUGS (1)
  1. KENACORT [Suspect]
     Indication: MACULAR OEDEMA
     Dosage: 1DF=40MG/ML. INTRAVITREAL ROUTE
     Route: 031

REACTIONS (1)
  - CHORIORETINOPATHY [None]
